FAERS Safety Report 8206109-9 (Version None)
Quarter: 2012Q1

REPORT INFORMATION
  Report Type: 
  Country: None (occurrence: None)
  Receive Date: 20120313
  Receipt Date: 20120308
  Transmission Date: 20120608
  Serious: Yes (Other)
  Sender: FDA-Public Use
  Company Number: AR-ABBOTT-12P-007-0913936-00

PATIENT
  Sex: Female

DRUGS (2)
  1. HUMIRA [Suspect]
     Indication: RHEUMATOID ARTHRITIS
     Route: 058
     Dates: start: 20110902
  2. AMOXICILLIN [Suspect]
     Indication: EAR INFECTION

REACTIONS (3)
  - EAR INFECTION [None]
  - MALAISE [None]
  - LARYNGEAL OEDEMA [None]
